FAERS Safety Report 7224636-8 (Version None)
Quarter: 2011Q1

REPORT INFORMATION
  Report Type: 
  Country: None (occurrence: None)
  Receive Date: 20110113
  Receipt Date: 20110110
  Transmission Date: 20110831
  Serious: Yes (Hospitalization)
  Sender: FDA-Public Use
  Company Number: US-ROXANE LABORATORIES, INC.-2011-RO-00044RO

PATIENT
  Sex: Female
  Weight: 83 kg

DRUGS (6)
  1. ADRIAMYCIN PFS [Suspect]
     Dates: start: 20030121, end: 20030304
  2. TAXOTERE [Suspect]
     Dates: start: 20030121, end: 20030304
  3. NEULASTA [Suspect]
     Indication: CHEMOTHERAPY
     Route: 058
     Dates: start: 20030121, end: 20030212
  4. DECADRON [Suspect]
     Dates: start: 20030121, end: 20030304
  5. KYTRIL [Suspect]
     Dates: start: 20030121, end: 20030304
  6. CYCLOPHOSPHAMIDE [Suspect]
     Dates: start: 20030121, end: 20030304

REACTIONS (2)
  - DYSPNOEA [None]
  - HYPOXIA [None]
